FAERS Safety Report 6826632-9 (Version None)
Quarter: 2010Q3

REPORT INFORMATION
  Report Type: 
  Country: None (occurrence: None)
  Receive Date: 20100709
  Receipt Date: 20100630
  Transmission Date: 20110219
  Serious: Yes (Life-Threatening, Hospitalization)
  Sender: FDA-Public Use
  Company Number: US-PFIZER INC-2010082310

PATIENT
  Age: 8 Year
  Sex: Male

DRUGS (1)
  1. SUNITINIB MALATE [Suspect]
     Indication: GLIOBLASTOMA MULTIFORME
     Dosage: 15 MG/M2,  DAILY FOR 28 DAYS
     Route: 048
     Dates: start: 20100608, end: 20100623

REACTIONS (2)
  - CEREBRAL HAEMORRHAGE [None]
  - HYPOXIA [None]
